FAERS Safety Report 15796956 (Version 2)
Quarter: 2019Q1

REPORT INFORMATION
  Report Type: Spontaneous
  Country: US (occurrence: US)
  Receive Date: 20190108
  Receipt Date: 20190118
  Transmission Date: 20190417
  Serious: Yes (Other)
  Sender: FDA-Public Use
  Company Number: US-ROCHE-2240951

PATIENT
  Sex: Female

DRUGS (9)
  1. ASTELIN (UNITED STATES) [Concomitant]
     Indication: HYPERSENSITIVITY
     Dosage: 1-2 SPRAYS EACH NOSTRILS
     Route: 065
     Dates: start: 2018
  2. XYZAL [Concomitant]
     Active Substance: LEVOCETIRIZINE DIHYDROCHLORIDE
     Indication: HYPERSENSITIVITY
     Dosage: 1 TABLET DAILY
     Route: 048
     Dates: start: 2018
  3. ZANTAC [Concomitant]
     Active Substance: RANITIDINE HYDROCHLORIDE
     Indication: URTICARIA
     Dosage: 1 TABLET
     Route: 048
     Dates: start: 2018
  4. SINGULAIR [Concomitant]
     Active Substance: MONTELUKAST SODIUM
     Indication: ASTHMA
     Dosage: 1 TABLET AT BEDTIME
     Route: 048
     Dates: start: 2018
  5. SINGULAIR [Concomitant]
     Active Substance: MONTELUKAST SODIUM
     Indication: HYPERSENSITIVITY
  6. ZYRTEC [Concomitant]
     Active Substance: CETIRIZINE HYDROCHLORIDE
     Route: 048
  7. XOLAIR [Suspect]
     Active Substance: OMALIZUMAB
     Indication: CHRONIC SPONTANEOUS URTICARIA
     Route: 065
     Dates: start: 201808
  8. PREDNISONE. [Concomitant]
     Active Substance: PREDNISONE
     Dosage: 20MIN AFTER ZYRTEC
     Route: 065
  9. METHIMAZOLE. [Concomitant]
     Active Substance: METHIMAZOLE
     Route: 048
     Dates: start: 2018

REACTIONS (4)
  - Anaphylactic reaction [Recovered/Resolved]
  - Anxiety [Unknown]
  - Hypersensitivity [Unknown]
  - Cough [Unknown]

NARRATIVE: CASE EVENT DATE: 20181228
